FAERS Safety Report 23529172 (Version 1)
Quarter: 2024Q1

REPORT INFORMATION
  Report Type: Spontaneous
  Country: US (occurrence: US)
  Receive Date: 20240216
  Receipt Date: 20240216
  Transmission Date: 20240410
  Serious: No
  Sender: FDA-Public Use
  Company Number: US-ELI_LILLY_AND_COMPANY-US202402008156

PATIENT
  Age: 44 Year
  Sex: Female

DRUGS (2)
  1. VERZENIO [Suspect]
     Active Substance: ABEMACICLIB
     Indication: Breast cancer
     Dosage: 150 MG, UNKNOWN
     Route: 065
     Dates: start: 20230720, end: 202312
  2. VERZENIO [Suspect]
     Active Substance: ABEMACICLIB
     Dosage: 150 MG, UNKNOWN
     Route: 065
     Dates: start: 202401, end: 20240207

REACTIONS (3)
  - Pain [Unknown]
  - Abdominal discomfort [Unknown]
  - Diarrhoea [Unknown]
